FAERS Safety Report 11160152 (Version 1)
Quarter: 2015Q2

REPORT INFORMATION
  Report Type: Spontaneous
  Country: FR (occurrence: FR)
  Receive Date: 20150603
  Receipt Date: 20150603
  Transmission Date: 20150821
  Serious: Yes (Other)
  Sender: FDA-Public Use
  Company Number: FR-PFIZER INC-2015098661

PATIENT
  Age: 75 Year
  Sex: Female
  Weight: 52 kg

DRUGS (6)
  1. DIFFU K [Concomitant]
     Active Substance: POTASSIUM CHLORIDE
     Route: 065
  2. SOTALOL. [Concomitant]
     Active Substance: SOTALOL
     Route: 065
  3. RAMIPRIL. [Suspect]
     Active Substance: RAMIPRIL
     Indication: TRANSIENT ISCHAEMIC ATTACK
     Dosage: 1.25 MG, 1X/DAY
     Route: 048
     Dates: start: 20141230
  4. LASILIX /00032601/ [Concomitant]
     Active Substance: FUROSEMIDE
     Route: 065
  5. CRESTOR [Concomitant]
     Active Substance: ROSUVASTATIN CALCIUM
     Dosage: 1 DF, UNK (1 DF = 5 UNIT NOS)
     Route: 065
  6. ELIQUIS [Suspect]
     Active Substance: APIXABAN
     Indication: CEREBROVASCULAR ACCIDENT PROPHYLAXIS
     Dosage: 5 MG, 2X/DAY
     Route: 065
     Dates: start: 20141229, end: 20150226

REACTIONS (3)
  - Monoplegia [Not Recovered/Not Resolved]
  - Drug tolerance decreased [Unknown]
  - Musculoskeletal stiffness [Unknown]

NARRATIVE: CASE EVENT DATE: 20150221
